FAERS Safety Report 18227848 (Version 4)
Quarter: 2021Q2

REPORT INFORMATION
  Report Type: Report from Study
  Country: GB (occurrence: GB)
  Receive Date: 20200903
  Receipt Date: 20210619
  Transmission Date: 20210717
  Serious: Yes (Hospitalization, Other)
  Sender: FDA-Public Use
  Company Number: NVSC2020GB240477

PATIENT
  Sex: Female

DRUGS (2)
  1. COSENTYX [Suspect]
     Active Substance: SECUKINUMAB
     Indication: PSORIATIC ARTHROPATHY
     Dosage: 150 MG, QMO
     Route: 058
     Dates: start: 20200123
  2. COSENTYX [Suspect]
     Active Substance: SECUKINUMAB
     Dosage: 150 MG, QMO
     Route: 058
     Dates: start: 20200827

REACTIONS (11)
  - Hand fracture [Unknown]
  - Phobia [Unknown]
  - Pain in extremity [Unknown]
  - Cough [Unknown]
  - Asthma [Unknown]
  - Procedural pain [Unknown]
  - Accidental exposure to product [Unknown]
  - Fall [Unknown]
  - Heart rate increased [Unknown]
  - Pain [Unknown]
  - Incorrect dose administered [Unknown]
